FAERS Safety Report 15465049 (Version 2)
Quarter: 2018Q4

REPORT INFORMATION
  Report Type: Spontaneous
  Country: JP (occurrence: JP)
  Receive Date: 20181004
  Receipt Date: 20181115
  Transmission Date: 20190204
  Serious: Yes (Other)
  Sender: FDA-Public Use
  Company Number: JP-JAZZ-2018-JP-014612

PATIENT

DRUGS (31)
  1. VINCRISTINE SULFATE. [Concomitant]
     Active Substance: VINCRISTINE SULFATE
     Indication: PRODUCT USED FOR UNKNOWN INDICATION
     Dosage: UNK ()
     Route: 065
     Dates: start: 20180508, end: 20180528
  2. CYSTEINE, GLYCINE, GLYCYRRHIZIC ACID [Concomitant]
     Indication: HEPATIC FUNCTION ABNORMAL
     Dosage: UNK ()
     Route: 065
  3. CYTARABINE. [Suspect]
     Active Substance: CYTARABINE
     Indication: PRODUCT USED FOR UNKNOWN INDICATION
     Dosage: UNK ()
     Route: 065
     Dates: start: 20180416, end: 20180417
  4. APIXABAN [Concomitant]
     Active Substance: APIXABAN
     Dosage: UNK ()
     Route: 065
  5. FEBUXOSTAT. [Concomitant]
     Active Substance: FEBUXOSTAT
     Indication: RENAL IMPAIRMENT
     Dosage: UNK
     Route: 065
  6. ICLUSIG [Suspect]
     Active Substance: PONATINIB
     Indication: ACUTE LYMPHOCYTIC LEUKAEMIA
     Dosage: 15 MG, UNK
     Route: 048
     Dates: start: 20180306, end: 20180417
  7. VINCRISTINE SULFATE. [Concomitant]
     Active Substance: VINCRISTINE SULFATE
     Dosage: UNK ()
     Route: 065
     Dates: start: 20180320, end: 20180409
  8. URSODEOXYCHOLIC ACID [Concomitant]
     Active Substance: URSODIOL
     Indication: HEPATIC FUNCTION ABNORMAL
     Dosage: UNK
     Route: 065
  9. CYSTEINE [Concomitant]
     Active Substance: CYSTEINE
     Dosage: UNK
     Route: 065
  10. GLYCYRRHIZIC ACID [Concomitant]
     Active Substance: GLYCYRRHIZIN
  11. DOXORUBICIN HYDROCHLORIDE. [Concomitant]
     Active Substance: DOXORUBICIN HYDROCHLORIDE
     Indication: PRODUCT USED FOR UNKNOWN INDICATION
     Dosage: UNK ()
     Route: 065
     Dates: start: 20180320, end: 20180409
  12. DEXAMETHASONE SODIUM PHOSPHATE. [Concomitant]
     Active Substance: DEXAMETHASONE SODIUM PHOSPHATE
     Indication: PRODUCT USED FOR UNKNOWN INDICATION
     Dosage: UNK ()
     Route: 065
     Dates: start: 20180320, end: 20180409
  13. ASPARAGINASE [Suspect]
     Active Substance: ASPARAGINASE
     Indication: PRODUCT USED FOR UNKNOWN INDICATION
     Dosage: UNK ()
     Route: 065
     Dates: start: 20180508, end: 20180528
  14. APIXABAN [Concomitant]
     Active Substance: APIXABAN
     Indication: ATRIAL FIBRILLATION
     Dosage: UNK
     Route: 065
     Dates: start: 20180425
  15. URSODEOXYCHOLIC ACID [Concomitant]
     Active Substance: URSODIOL
     Indication: HEPATIC FUNCTION ABNORMAL
     Dosage: UNK ()
     Route: 065
  16. VERAPAMIL HYDROCHLORIDE. [Concomitant]
     Active Substance: VERAPAMIL HYDROCHLORIDE
     Indication: ATRIAL FIBRILLATION
     Dosage: UNK
     Route: 065
  17. PREDNISOLONE. [Concomitant]
     Active Substance: PREDNISOLONE
     Dosage: UNK ()
     Route: 065
     Dates: start: 20180508, end: 20180528
  18. FLUCONAZOLE. [Concomitant]
     Active Substance: FLUCONAZOLE
     Dosage: 100 MG, UNK
     Route: 065
     Dates: start: 20180411, end: 20180508
  19. IMATINIB MESILATE [Suspect]
     Active Substance: IMATINIB MESYLATE
     Indication: PRODUCT USED FOR UNKNOWN INDICATION
     Dosage: 400 MG, UNK
     Route: 048
     Dates: start: 20180523, end: 20180525
  20. DOXORUBICIN HYDROCHLORIDE. [Concomitant]
     Active Substance: DOXORUBICIN HYDROCHLORIDE
     Dosage: UNK ()
     Route: 065
     Dates: start: 20180508, end: 20180528
  21. FLUCONAZOLE. [Concomitant]
     Active Substance: FLUCONAZOLE
     Indication: PROPHYLAXIS
     Dosage: 100 MG, UNK
     Route: 065
     Dates: start: 20180306, end: 20180318
  22. RIVAROXABAN [Concomitant]
     Active Substance: RIVAROXABAN
     Indication: ATRIAL FIBRILLATION
     Dosage: UNK ()
     Route: 065
     Dates: start: 20180417, end: 20180419
  23. HEPARIN [Concomitant]
     Active Substance: HEPARIN SODIUM
     Indication: ATRIAL FIBRILLATION
     Dosage: UNK ()
     Route: 065
     Dates: start: 20180420, end: 20180423
  24. FEBUXOSTAT. [Concomitant]
     Active Substance: FEBUXOSTAT
     Dosage: UNK ()
     Route: 065
  25. PONATINIB [Suspect]
     Active Substance: PONATINIB
     Indication: ACUTE LYMPHOCYTIC LEUKAEMIA
     Dosage: 15 MG
     Route: 048
     Dates: start: 20180306, end: 20180417
  26. VERAPAMIL HYDROCHLORIDE. [Concomitant]
     Active Substance: VERAPAMIL HYDROCHLORIDE
     Dosage: UNK ()
     Route: 065
  27. PREDNISOLONE. [Concomitant]
     Active Substance: PREDNISOLONE
     Indication: PRODUCT USED FOR UNKNOWN INDICATION
     Dosage: UNK ()
     Route: 065
     Dates: start: 20180306, end: 20180329
  28. CYCLOPHOSPHAMIDE MONOHYDRATE [Concomitant]
     Active Substance: CYCLOPHOSPHAMIDE
     Indication: PRODUCT USED FOR UNKNOWN INDICATION
     Dosage: UNK ()
     Route: 065
     Dates: start: 20180320, end: 20180409
  29. ERWINASE [Suspect]
     Active Substance: ASPARAGINASE ERWINIA CHRYSANTHEMI
     Indication: PRODUCT USED FOR UNKNOWN INDICATION
     Dosage: UNKNOWN DOSE
     Route: 048
     Dates: start: 20180508, end: 20180528
  30. METHOTREXATE. [Suspect]
     Active Substance: METHOTREXATE
     Indication: PRODUCT USED FOR UNKNOWN INDICATION
     Dosage: UNK ()
     Route: 065
     Dates: start: 20180416, end: 20180417
  31. GLYCINE. [Concomitant]
     Active Substance: GLYCINE

REACTIONS (2)
  - Pancreatitis acute [Recovering/Resolving]
  - Electrocardiogram QT prolonged [Recovered/Resolved]

NARRATIVE: CASE EVENT DATE: 20180525
